FAERS Safety Report 8294634 (Version 3)
Quarter: 2013Q4

REPORT INFORMATION
  Report Type: Spontaneous
  Country: US (occurrence: US)
  Receive Date: 20111216
  Receipt Date: 20131209
  Transmission Date: 20140711
  Serious: No
  Sender: FDA-Public Use
  Company Number: US-JNJFOC-20111204304

PATIENT
  Sex: Female
  Weight: 62.6 kg

DRUGS (1)
  1. DURAGESIC [Suspect]
     Indication: PAIN
     Route: 062
     Dates: start: 2010

REACTIONS (3)
  - Wrong technique in drug usage process [Recovered/Resolved]
  - Wrong technique in drug usage process [Unknown]
  - Product quality issue [Unknown]
